FAERS Safety Report 8566791 (Version 2)
Quarter: 2012Q4

REPORT INFORMATION
  Report Type: Spontaneous
  Country: CA (occurrence: None)
  Receive Date: 20120511
  Receipt Date: 20120815
  Transmission Date: 20130627
  Serious: Yes (Other)
  Sender: FDA-Public Use
  Company Number: ADR-2012-00849

PATIENT
  Sex: Female

DRUGS (2)
  1. BACLOFEN [Suspect]
     Indication: MUSCLE SPASTICITY
     Dosage: 1,000 MCG/ML
  2. BACLOFEN [Concomitant]

REACTIONS (2)
  - Muscle spasticity [None]
  - Glioblastoma multiforme [None]
